FAERS Safety Report 8952537 (Version 1)
Quarter: 2012Q4

REPORT INFORMATION
  Report Type: 
  Country: US (occurrence: US)
  Receive Date: 20121205
  Receipt Date: 20121205
  Transmission Date: 20130627
  Serious: Yes (Death, Other)
  Sender: FDA-Public Use
  Company Number: US-BAYER-2012-126638

PATIENT
  Age: 83 Year
  Sex: Male
  Weight: 91 kg

DRUGS (30)
  1. LIDOCAINE [Concomitant]
     Dosage: UNK
     Dates: start: 20040527, end: 20040527
  2. MAGNESIUM SULFATE [Concomitant]
     Dosage: UNK
     Dates: start: 20040527, end: 20040527
  3. PLATELETS, HUMAN BLOOD [Concomitant]
     Dosage: UNK
     Dates: start: 20040527, end: 20040527
  4. PLASMA [Concomitant]
     Dosage: UNK
     Dates: start: 20040527, end: 20040527
  5. DOPAMINE [Concomitant]
  6. LASIX [Concomitant]
  7. PRIMACOR [Concomitant]
  8. DOBUTAMINE [Concomitant]
  9. TRASYLOL [Suspect]
     Indication: AORTIC VALVE REPLACEMENT
     Dosage: Test dose: 100mL pump prime
     Route: 042
     Dates: start: 20040527, end: 20040527
  10. TRASYLOL [Suspect]
     Indication: AORTOCORONARY BYPASS
     Dosage: Unknown amount - continuous infusion
     Dates: start: 20040527, end: 20040527
  11. ACETYLSALICYLIC ACID({=100 MG) [Concomitant]
     Dosage: 81 mg, QD
     Route: 048
     Dates: start: 20040521
  12. K-DUR [Concomitant]
     Dosage: 10 mEq 1-2 daily
     Route: 048
  13. COUMADIN [Concomitant]
     Dosage: 5 mg, QD
     Route: 048
     Dates: end: 20040520
  14. LASIX [Concomitant]
     Dosage: 40 mg, QD
     Route: 048
  15. ZYLOPRIM [Concomitant]
     Dosage: 300 mg, QD
     Route: 048
  16. ULTRAM [Concomitant]
     Dosage: 50 mg, PRN
     Route: 048
  17. TYLENOL REGULAR [Concomitant]
     Dosage: 500 mg, PRN
     Route: 048
  18. TYLENOL ARTHRITIS EXTENDED RELIEF [Concomitant]
     Dosage: 650mg 1 every 2-3 hours as needed
     Route: 048
  19. NITROGLYCERIN [Concomitant]
     Dosage: PRN
     Route: 060
  20. GLYNASE [Concomitant]
     Dosage: 3 mg, QD
     Route: 048
  21. ATENOLOL [Concomitant]
     Dosage: 25 mg, QD
     Route: 048
  22. SUFENTA [Concomitant]
     Dosage: UNK
     Dates: start: 20040527, end: 20040527
  23. PAVULON [Concomitant]
     Dosage: UNK
     Dates: start: 20040527, end: 20040527
  24. DESFLURANE [Concomitant]
     Dosage: UNK
     Dates: start: 20040527, end: 20040527
  25. HEPARIN [Concomitant]
     Dosage: UNK
     Dates: start: 20040527, end: 20040527
  26. CALCIUM CHLORIDE [Concomitant]
     Dosage: UNK
     Dates: start: 20040527, end: 20040527
  27. ANCEF [Concomitant]
     Dosage: UNK
     Dates: start: 20040527, end: 20040527
  28. MANNITOL [Concomitant]
     Dosage: pump prime
     Dates: start: 20040527, end: 20040527
  29. NEOSYNEPHRINE [Concomitant]
     Dosage: UNK
     Dates: start: 20040527
  30. SODIUM BICARBONATE [Concomitant]
     Dosage: 100mEq
     Dates: start: 20040527, end: 20040527

REACTIONS (6)
  - Death [Fatal]
  - Myocardial infarction [None]
  - Renal failure acute [None]
  - Renal tubular necrosis [None]
  - Renal failure [None]
  - Off label use [None]
